FAERS Safety Report 7996125-4 (Version None)
Quarter: 2011Q4

REPORT INFORMATION
  Report Type: 
  Country: None (occurrence: None)
  Receive Date: 20111220
  Receipt Date: 20111213
  Transmission Date: 20120403
  Serious: Yes (Death)
  Sender: FDA-Public Use
  Company Number: PHEH2011US011411

PATIENT
  Sex: Male

DRUGS (15)
  1. CELEBREX [Concomitant]
     Dosage: 100 MG, UNK
  2. CRESTOR [Concomitant]
  3. FISH OIL [Concomitant]
  4. LEVOTHYROXINE SODIUM [Concomitant]
     Dosage: 200 UG, UNK
  5. AFINITOR [Suspect]
     Dosage: 10 MG, DAILY
     Route: 048
  6. TORSEMIDE [Concomitant]
     Dosage: 10 MG, UNK
  7. SPIRIVA [Concomitant]
  8. ACETAMINOPHEN [Concomitant]
  9. VITAMIN D [Concomitant]
  10. SULFAMETHOXAZOLE AND TRIMETHOPRIM DOUBLE STRENGTH [Concomitant]
  11. MILK THISTLE CAP [Concomitant]
  12. SINGULAIR [Concomitant]
  13. CENTRUM [Concomitant]
  14. ADVAIR DISKUS 100/50 [Concomitant]
  15. DISKU AER [Concomitant]

REACTIONS (2)
  - RESPIRATORY FAILURE [None]
  - LUNG NEOPLASM [None]
